FAERS Safety Report 18508664 (Version 1)
Quarter: 2020Q4

REPORT INFORMATION
  Report Type: Spontaneous
  Country: KR (occurrence: KR)
  Receive Date: 20201117
  Receipt Date: 20201117
  Transmission Date: 20210114
  Serious: Yes (Hospitalization, Other)
  Sender: FDA-Public Use
  Company Number: KR-DENTSPLY-2020SCDP000362

PATIENT
  Age: 48 Year
  Sex: Male
  Weight: 79 kg

DRUGS (4)
  1. LIDOCAINE HCL [Suspect]
     Active Substance: LIDOCAINE HYDROCHLORIDE
     Indication: NERVE BLOCK
     Dosage: 10 MILLILITER TOTAL OF 1% LIDOCAINE (INJECTED IN 5 ML INCREMENTS AT A RATE OF 1 ML EVERY 3 SECONDS,
  2. LIDOCAINE HCL [Suspect]
     Active Substance: LIDOCAINE HYDROCHLORIDE
     Indication: LOCAL ANAESTHESIA
  3. NORMAL SALINE [Concomitant]
     Active Substance: SODIUM CHLORIDE
     Indication: INJECTION SITE ANAESTHESIA
     Dosage: 10 MILLILITER TOTAL OF NORMAL SALINE, INJECTION
  4. NORMAL SALINE [Concomitant]
     Active Substance: SODIUM CHLORIDE
     Indication: NERVE BLOCK

REACTIONS (4)
  - Dysarthria [Recovered/Resolved]
  - Neurotoxicity [Recovered/Resolved]
  - Euphoric mood [Recovered/Resolved]
  - Local anaesthetic systemic toxicity [Recovered/Resolved]
